FAERS Safety Report 8672233 (Version 6)
Quarter: 2012Q4

REPORT INFORMATION
  Report Type: 
  Country: US (occurrence: US)
  Receive Date: 20120719
  Receipt Date: 20120927
  Transmission Date: 20130627
  Serious: No
  Sender: FDA-Public Use
  Company Number: US-PFIZER INC-2012171403

PATIENT
  Age: 79 Year
  Sex: Female
  Weight: 68 kg

DRUGS (5)
  1. NEURONTIN [Suspect]
     Indication: PAIN
     Dosage: UNK
     Dates: end: 201206
  2. KLONOPIN [Suspect]
     Indication: ANXIETY
     Dosage: UNK
     Dates: start: 2012
  3. INDERAL [Concomitant]
     Indication: TREMOR
     Dosage: 20 mg, 2x/day
  4. ACETYLSALICYLIC ACID [Concomitant]
     Dosage: 81 mg,daily
  5. VOLTAREN [Concomitant]
     Indication: NECK PAIN
     Dosage: 100 mg, daily

REACTIONS (3)
  - Somnolence [Recovered/Resolved]
  - Drug intolerance [Unknown]
  - Headache [Recovered/Resolved]
